FAERS Safety Report 6508059-2 (Version None)
Quarter: 2009Q4

REPORT INFORMATION
  Report Type: 
  Country: None (occurrence: None)
  Receive Date: 20091221
  Receipt Date: 20091215
  Transmission Date: 20100525
  Serious: Yes (Death, Life-Threatening, Hospitalization, Other)
  Sender: FDA-Public Use
  Company Number: GB-ABBOTT-08P-167-0432027-00

PATIENT
  Age: 25 Year
  Sex: Male

DRUGS (17)
  1. CLARITHROMYCIN [Suspect]
     Indication: CHEST DISCOMFORT
     Route: 065
  2. CLARITHROMYCIN [Suspect]
     Indication: PNEUMOCYSTIS JIROVECI PNEUMONIA
  3. IBUPROFEN [Suspect]
     Indication: PAIN IN EXTREMITY
     Route: 048
  4. COMBIVIR [Suspect]
     Indication: HIV TEST POSITIVE
     Route: 065
  5. EFAVIRENZ [Suspect]
     Indication: HIV TEST POSITIVE
     Route: 065
  6. COTRIMOXAZOLE [Suspect]
     Indication: ANTIFUNGAL PROPHYLAXIS
     Route: 065
  7. CIPROFLOXACIN [Suspect]
     Indication: RESPIRATORY DISORDER
     Route: 065
  8. CIPROFLOXACIN [Suspect]
     Indication: PNEUMOCYSTIS JIROVECI PNEUMONIA
  9. TENOFOVIR [Suspect]
     Indication: HIV TEST POSITIVE
     Route: 048
  10. LAMIVUDINE [Suspect]
     Indication: HIV TEST POSITIVE
     Route: 048
     Dates: start: 20030408, end: 20030417
  11. NEVIRAPINE [Suspect]
     Indication: HIV TEST POSITIVE
     Route: 065
  12. VIRAMUNE [Suspect]
     Indication: HIV TEST POSITIVE
     Route: 048
     Dates: start: 20030408
  13. LOPERAMIDE HYDROCHLORIDE [Concomitant]
     Indication: DIARRHOEA
     Route: 065
  14. BLOOD TRANSFUSION [Concomitant]
     Indication: HAEMOGLOBIN DECREASED
  15. BACTRIM [Concomitant]
     Indication: PROPHYLAXIS
     Route: 065
  16. SEPTRIN [Concomitant]
     Indication: HIV TEST POSITIVE
     Route: 048
     Dates: start: 20030408, end: 20030417
  17. COMBIVIR [Concomitant]
     Indication: HIV INFECTION
     Dates: start: 20030311, end: 20030327

REACTIONS (10)
  - AGITATION [None]
  - CHOLANGITIS [None]
  - CONFUSIONAL STATE [None]
  - COUGH [None]
  - HEPATIC FAILURE [None]
  - HEPATOTOXICITY [None]
  - PAIN IN EXTREMITY [None]
  - SEPSIS [None]
  - VANISHING BILE DUCT SYNDROME [None]
  - VOMITING [None]
